FAERS Safety Report 5856187-7 (Version None)
Quarter: 2008Q3

REPORT INFORMATION
  Report Type: 
  Country: None (occurrence: None)
  Receive Date: 20080825
  Receipt Date: 20080815
  Transmission Date: 20090109
  Serious: Yes (Hospitalization, Congenital Anomaly)
  Sender: FDA-Public Use
  Company Number: A0730937A

PATIENT
  Sex: Male
  Weight: 3.8 kg

DRUGS (6)
  1. PAXIL [Suspect]
     Indication: ANXIETY
     Dosage: 40MG PER DAY
     Dates: start: 20020301
  2. ALBUTEROL [Concomitant]
     Dates: start: 20020101, end: 20030101
  3. VITAMIN TAB [Concomitant]
  4. DARVOCET [Concomitant]
  5. ASTHMA MEDICATION [Concomitant]
  6. ACCUTANE [Concomitant]

REACTIONS (6)
  - DRUG EXPOSURE DURING PREGNANCY [None]
  - GASTROOESOPHAGEAL REFLUX DISEASE [None]
  - NEONATAL RESPIRATORY DISTRESS SYNDROME [None]
  - PATENT DUCTUS ARTERIOSUS [None]
  - PERSISTENT FOETAL CIRCULATION [None]
  - TRICUSPID VALVE INCOMPETENCE [None]
